APPROVED DRUG PRODUCT: PHENYTOIN
Active Ingredient: PHENYTOIN
Strength: 125MG/5ML
Dosage Form/Route: SUSPENSION;ORAL
Application: A040342 | Product #001
Applicant: VISTAPHARM LLC
Approved: Jan 31, 2001 | RLD: No | RS: No | Type: DISCN